FAERS Safety Report 9258607 (Version 1)
Quarter: 2013Q2

REPORT INFORMATION
  Report Type: Spontaneous
  Country: SE (occurrence: SE)
  Receive Date: 20130426
  Receipt Date: 20130426
  Transmission Date: 20140414
  Serious: Yes (Hospitalization)
  Sender: FDA-Public Use
  Company Number: SE-ASTRAZENECA-2013SE26004

PATIENT
  Age: 80 Year
  Sex: Male

DRUGS (13)
  1. NAROP [Suspect]
     Indication: LOCAL ANAESTHESIA
     Dosage: 150 ML (2 MG/ML)
  2. NAROP [Suspect]
     Indication: LOCAL ANAESTHESIA
     Dosage: 20 ML (7.5 MG/ML)
  3. EPINEPHRINE [Suspect]
     Indication: LOCAL ANAESTHESIA
     Dosage: 5 ML (0.1 MG/ML)
  4. EPINEPHRINE [Suspect]
     Indication: LOCAL ANAESTHESIA
     Dosage: 5 ML (0.1 MG/ML)
  5. KETOROLAC [Suspect]
     Indication: LOCAL ANAESTHESIA
     Dosage: 1 ML (30 MG/ML)
  6. KETOROLAC [Suspect]
     Indication: LOCAL ANAESTHESIA
     Dosage: 1 ML (30 MG/ML)
  7. ANAESTHETIC [Concomitant]
     Indication: SPINAL ANAESTHESIA
  8. EMCONCOR [Concomitant]
     Dosage: 2.5 MG DAILY
  9. DIOVAN [Concomitant]
     Dosage: 1X1
  10. FELODIPINE [Concomitant]
     Dosage: 10 MG DAILY
  11. TEGRETOL [Concomitant]
     Dosage: 200 MG DAILY
  12. SIMVASTATIN [Concomitant]
     Dosage: 40 MG DAILY
  13. WARAN [Concomitant]
     Dosage: 2.5MG

REACTIONS (7)
  - Renal failure [Recovered/Resolved]
  - Dehydration [Recovered/Resolved]
  - Procedural hypotension [None]
  - Blood potassium increased [None]
  - Hydronephrosis [None]
  - Weight increased [None]
  - Decreased appetite [None]
